FAERS Safety Report 14317015 (Version 1)
Quarter: 2017Q4

REPORT INFORMATION
  Report Type: Spontaneous
  Country: NL (occurrence: NL)
  Receive Date: 20171222
  Receipt Date: 20171222
  Transmission Date: 20180321
  Serious: Yes (Death, Other)
  Sender: FDA-Public Use
  Company Number: NL-009507513-1712NLD009947

PATIENT
  Age: 56 Year
  Sex: Female
  Weight: 86 kg

DRUGS (7)
  1. ONDANSETRON [Concomitant]
     Active Substance: ONDANSETRON
     Dosage: 3 DD ZN 0.5 TABLET
     Route: 050
     Dates: start: 20171107
  2. TEMAZEPAM. [Concomitant]
     Active Substance: TEMAZEPAM
     Dosage: 20 MG, UNK
     Route: 050
     Dates: start: 20171107
  3. KEYTRUDA [Suspect]
     Active Substance: PEMBROLIZUMAB
     Indication: NON-SMALL CELL LUNG CANCER
     Dosage: 50 MG, UNK
     Route: 042
     Dates: start: 20171026, end: 20171113
  4. ESOMEPRAZOLE [Concomitant]
     Active Substance: ESOMEPRAZOLE
     Dosage: 1 DD 1
     Route: 050
     Dates: start: 20171107
  5. FLUTICASONE PROPIONATE (+) SALMETEROL XINAFOATE [Concomitant]
     Active Substance: FLUTICASONE PROPIONATE\SALMETEROL XINAFOATE
     Dosage: 2D722(1)
     Route: 055
     Dates: start: 20171107
  6. METOPROLOL TARTRATE. [Concomitant]
     Active Substance: METOPROLOL TARTRATE
     Dosage: 3 DD 0.5 TABLET
     Route: 050
     Dates: start: 20171107
  7. ACETAMINOPHEN. [Concomitant]
     Active Substance: ACETAMINOPHEN
     Dosage: 4 DD 2
     Route: 050
     Dates: start: 20171107

REACTIONS (2)
  - Hepatotoxicity [Unknown]
  - Death [Fatal]

NARRATIVE: CASE EVENT DATE: 20171107
